FAERS Safety Report 15001935 (Version 1)
Quarter: 2018Q2

REPORT INFORMATION
  Report Type: Spontaneous
  Country: CN (occurrence: CN)
  Receive Date: 20180612
  Receipt Date: 20180612
  Transmission Date: 20180711
  Serious: No
  Sender: FDA-Public Use
  Company Number: CN-ELI_LILLY_AND_COMPANY-CN201806003780

PATIENT
  Age: 50 Year
  Sex: Male
  Weight: 73 kg

DRUGS (1)
  1. TADALAFIL 20MG [Suspect]
     Active Substance: TADALAFIL
     Indication: SEXUAL DYSFUNCTION
     Dosage: 20 MG, UNKNOWN
     Route: 048
     Dates: start: 20180531, end: 20180531

REACTIONS (2)
  - Vision blurred [Unknown]
  - Dizziness [Unknown]

NARRATIVE: CASE EVENT DATE: 20180531
